FAERS Safety Report 24273547 (Version 1)
Quarter: 2024Q3

REPORT INFORMATION
  Report Type: Spontaneous
  Country: US (occurrence: US)
  Receive Date: 20240902
  Receipt Date: 20240902
  Transmission Date: 20241016
  Serious: Yes (Hospitalization)
  Sender: SANDOZ
  Company Number: US-MLMSERVICE-20240612-PI096223-00030-1

PATIENT
  Age: 38 Year
  Sex: Male

DRUGS (2)
  1. ACETAMINOPHEN [Suspect]
     Active Substance: ACETAMINOPHEN
     Indication: Pain
     Dosage: LARGE, UNKNOWN QUANTITIES
     Route: 065
  2. IBUPROFEN [Suspect]
     Active Substance: IBUPROFEN
     Indication: Pain
     Dosage: LARGE, UNKNOWN QUANTITIES
     Route: 065

REACTIONS (5)
  - Parvimonas micra infection [Recovered/Resolved]
  - Bacteraemia [Recovered/Resolved]
  - Intentional product use issue [Recovering/Resolving]
  - Liver injury [Recovering/Resolving]
  - Renal tubular necrosis [Recovering/Resolving]
